FAERS Safety Report 7039771-7 (Version None)
Quarter: 2010Q4

REPORT INFORMATION
  Report Type: 
  Country: None (occurrence: None)
  Receive Date: 20101012
  Receipt Date: 20101001
  Transmission Date: 20110411
  Serious: Yes (Hospitalization)
  Sender: FDA-Public Use
  Company Number: US-SANOFI-AVENTIS-2010SA059681

PATIENT
  Sex: Female
  Weight: 98.1 kg

DRUGS (13)
  1. PLAVIX [Suspect]
     Indication: CORONARY ARTERY DISEASE
     Route: 048
     Dates: start: 20090109
  2. STUDY MEDICATION NOT GIVEN [Suspect]
     Indication: OSTEOARTHRITIS
     Dates: start: 20070621, end: 20091101
  3. STUDY MEDICATION NOT GIVEN [Suspect]
     Indication: RHEUMATOID ARTHRITIS
     Dates: start: 20070621, end: 20091101
  4. METFORMIN [Suspect]
     Route: 048
     Dates: start: 20071116
  5. VALSARTAN [Suspect]
     Indication: HYPERTENSION
     Route: 048
     Dates: start: 20080229, end: 20100725
  6. NEXIUM [Concomitant]
     Dates: start: 20070621, end: 20091101
  7. CRESTOR [Concomitant]
     Dates: start: 20090109
  8. ASPIRIN [Concomitant]
     Dates: start: 20090109
  9. VITAMIN B6 [Concomitant]
     Dates: start: 20070910
  10. ALBUTEROL [Concomitant]
     Dates: start: 20080424
  11. ADVAIR DISKUS 100/50 [Concomitant]
     Dates: start: 20080424
  12. VICODIN [Concomitant]
     Dates: start: 20091102
  13. MAGNESIUM [Concomitant]
     Dates: start: 20080524

REACTIONS (2)
  - RENAL FAILURE ACUTE [None]
  - THROMBOCYTOPENIA [None]
